FAERS Safety Report 8322840-9 (Version None)
Quarter: 2012Q2

REPORT INFORMATION
  Report Type: 
  Country: None (occurrence: None)
  Receive Date: 20120430
  Receipt Date: 20120424
  Transmission Date: 20120825
  Serious: Yes (Hospitalization)
  Sender: FDA-Public Use
  Company Number: PHHY2012FR034723

PATIENT
  Age: 34 Year
  Sex: Male

DRUGS (12)
  1. PRAVASTATIN [Interacting]
  2. CYCLOSPORINE [Interacting]
  3. COTRIM [Concomitant]
  4. COLCHICINE [Interacting]
     Indication: GOUTY ARTHRITIS
     Dosage: 3 MG, FIRST DAY
  5. AZITHROMYCIN [Suspect]
  6. ESOMEPRAZOLE MAGNESIUM [Concomitant]
  7. COLCHICINE [Interacting]
     Dosage: 2 MG, SECOND AND THIRD DAY
  8. COLCHICINE [Interacting]
     Dosage: 1 MG, DAILY DURING 6 DAYS
  9. IRBESARTAN [Concomitant]
  10. HYDROCORTISONE [Concomitant]
  11. EVEROLIMUS [Concomitant]
  12. NICORANDIL [Concomitant]

REACTIONS (13)
  - DYSPNOEA [None]
  - LEUKOCYTOSIS [None]
  - RENAL FAILURE [None]
  - HAEMOPTYSIS [None]
  - COUGH [None]
  - CYTOLYTIC HEPATITIS [None]
  - LYMPHOPENIA [None]
  - DRUG LEVEL INCREASED [None]
  - RHABDOMYOLYSIS [None]
  - GENERAL PHYSICAL HEALTH DETERIORATION [None]
  - DRUG INTERACTION [None]
  - DIARRHOEA [None]
  - TOXICITY TO VARIOUS AGENTS [None]
